FAERS Safety Report 21326203 (Version 1)
Quarter: 2022Q3

REPORT INFORMATION
  Report Type: Report from Study
  Country: US (occurrence: US)
  Receive Date: 20220913
  Receipt Date: 20220913
  Transmission Date: 20221027
  Serious: No
  Sender: FDA-Public Use
  Company Number: US-ETON PHARMACEUTICALS, INC-2022ETO000185

PATIENT

DRUGS (3)
  1. ALKINDI SPRINKLE [Suspect]
     Active Substance: HYDROCORTISONE
     Indication: Hypopituitarism
     Dosage: 2 MILLIGRAM
     Route: 048
     Dates: start: 20220728, end: 202208
  2. ALKINDI SPRINKLE [Suspect]
     Active Substance: HYDROCORTISONE
     Dosage: 0.5 MILLIGRAM
     Route: 048
     Dates: start: 20220728, end: 202208
  3. ALKINDI SPRINKLE [Suspect]
     Active Substance: HYDROCORTISONE
     Dosage: 5 MILLIGRAM, TID, STRESS DOSE
     Route: 048

REACTIONS (7)
  - Incorrect dose administered [Unknown]
  - Blood glucose decreased [Unknown]
  - Lethargy [Unknown]
  - Illness [Unknown]
  - COVID-19 [Unknown]
  - Vomiting [Unknown]
  - Drug ineffective [Unknown]

NARRATIVE: CASE EVENT DATE: 20220101
